FAERS Safety Report 4749587-X (Version None)
Quarter: 2005Q3

REPORT INFORMATION
  Report Type: 
  Country: None (occurrence: None)
  Receive Date: 20050822
  Receipt Date: 20050816
  Transmission Date: 20060218
  Serious: Yes (Hospitalization)
  Sender: FDA-Public Use
  Company Number: JP-GLAXOSMITHKLINE-B0390924A

PATIENT
  Age: 1 Month
  Sex: Female

DRUGS (6)
  1. FLUTIDE [Suspect]
     Indication: LUNG DISORDER
     Route: 055
     Dates: start: 20050609, end: 20050718
  2. LASIX [Concomitant]
     Route: 065
  3. ALDACTONE [Concomitant]
     Route: 048
  4. INCREMIN [Concomitant]
     Route: 048
  5. SODIUM CHLORIDE [Concomitant]
  6. ESPO [Concomitant]

REACTIONS (1)
  - ADRENOCORTICAL INSUFFICIENCY ACUTE [None]
